FAERS Safety Report 12483707 (Version 3)
Quarter: 2018Q4

REPORT INFORMATION
  Report Type: Report from Study
  Country: JP (occurrence: JP)
  Receive Date: 20160621
  Receipt Date: 20181018
  Transmission Date: 20190204
  Serious: Yes (Hospitalization, Other)
  Sender: FDA-Public Use
  Company Number: JP-AMGEN-JPNNI2016079371

PATIENT
  Age: 75 Year
  Sex: Female

DRUGS (2)
  1. DARBEPOETIN ALFA [Suspect]
     Active Substance: DARBEPOETIN ALFA
     Indication: PRODUCT USED FOR UNKNOWN INDICATION
     Dosage: UNK
     Route: 042
     Dates: start: 20140317, end: 20150706
  2. DARBEPOETIN ALFA [Suspect]
     Active Substance: DARBEPOETIN ALFA
     Dosage: UNK
     Route: 042
     Dates: start: 20150713

REACTIONS (9)
  - Intermittent claudication [Recovering/Resolving]
  - Pain [Recovering/Resolving]
  - Fluid overload [Recovering/Resolving]
  - Angina pectoris [Recovering/Resolving]
  - Intermittent claudication [Recovering/Resolving]
  - Hospitalisation [Recovering/Resolving]
  - Pain [Recovering/Resolving]
  - Intermittent claudication [Recovering/Resolving]
  - Pain [Recovering/Resolving]

NARRATIVE: CASE EVENT DATE: 20151104
